FAERS Safety Report 9171475 (Version 2)
Quarter: 2013Q1

REPORT INFORMATION
  Report Type: Spontaneous
  Country: US (occurrence: None)
  Receive Date: 20130205
  Receipt Date: 20130313
  Transmission Date: 20140127
  Serious: No
  Sender: FDA-Public Use
  Company Number: 2012PROUSA02427

PATIENT
  Age: 71 Year
  Sex: Male
  Weight: 103.3 kg

DRUGS (3)
  1. PROVENGE (SIPULEUCEL-T) SUSPENSION, 250ML [Suspect]
     Indication: PROSTATE CANCER METASTATIC
     Route: 042
     Dates: start: 20121115, end: 20121115
  2. LUPRON (LEUPRORELIN ACETATE) [Concomitant]
  3. BICALUTAMIDE (BICALUTAMIDE) [Concomitant]

REACTIONS (15)
  - Cholecystitis acute [None]
  - Hallucination [None]
  - Confusional state [None]
  - Diplopia [None]
  - Hypoaesthesia [None]
  - Tooth infection [None]
  - Dysuria [None]
  - Decreased appetite [None]
  - Nausea [None]
  - Vomiting [None]
  - Weight decreased [None]
  - Back pain [None]
  - Localised intraabdominal fluid collection [None]
  - General physical health deterioration [None]
  - Prostate cancer [None]
